FAERS Safety Report 14703404 (Version 1)
Quarter: 2018Q2

REPORT INFORMATION
  Report Type: Spontaneous
  Country: US (occurrence: US)
  Receive Date: 20180402
  Receipt Date: 20180402
  Transmission Date: 20180711
  Serious: Yes (Other)
  Sender: FDA-Public Use
  Company Number: PHEH2018US011603

PATIENT

DRUGS (3)
  1. RIFAMPIN CAPSULES USP [Suspect]
     Active Substance: RIFAMPIN
     Indication: MYCOBACTERIUM AVIUM COMPLEX INFECTION
     Dosage: UNK
     Route: 065
  2. AZITHRO [Suspect]
     Active Substance: AZITHROMYCIN
     Indication: MYCOBACTERIUM AVIUM COMPLEX INFECTION
     Dosage: UNK
     Route: 065
  3. ETHAMBUTOL [Suspect]
     Active Substance: ETHAMBUTOL HYDROCHLORIDE
     Indication: MYCOBACTERIUM AVIUM COMPLEX INFECTION
     Dosage: UNK
     Route: 065

REACTIONS (5)
  - Vomiting [Unknown]
  - Mycobacterium avium complex infection [Unknown]
  - Pathogen resistance [Unknown]
  - Fall [Unknown]
  - Drug intolerance [Unknown]
